FAERS Safety Report 17217932 (Version 1)
Quarter: 2019Q4

REPORT INFORMATION
  Report Type: Spontaneous
  Country: GB (occurrence: GB)
  Receive Date: 20191231
  Receipt Date: 20191231
  Transmission Date: 20200122
  Serious: Yes (Other)
  Sender: FDA-Public Use
  Company Number: GB-TEVA-2019-GB-1159542

PATIENT
  Age: 39 Year
  Sex: Male
  Weight: 82 kg

DRUGS (5)
  1. OMEPRAZOLE. [Concomitant]
     Active Substance: OMEPRAZOLE
     Dosage: 20 MG PER DAY
     Route: 048
     Dates: start: 20130729
  2. DIAZEPAM. [Concomitant]
     Active Substance: DIAZEPAM
     Indication: MUSCLE SPASMS
     Dosage: 15 MG PER DAY
     Route: 048
     Dates: start: 20130724
  3. NAPROXEN. [Concomitant]
     Active Substance: NAPROXEN
     Indication: BACK PAIN
     Dosage: 1000 MG PER DAY
     Route: 048
     Dates: start: 20130828
  4. DIHYDROCODEINE [Concomitant]
     Active Substance: DIHYDROCODEINE
     Indication: BACK PAIN
     Dosage: 240 MG PER DAY
     Route: 048
     Dates: start: 20130904
  5. VENLAFAXINE [Suspect]
     Active Substance: VENLAFAXINE HYDROCHLORIDE
     Indication: DEPRESSION
     Dosage: 75 MG
     Route: 048
     Dates: start: 20130724

REACTIONS (6)
  - Mood swings [Recovered/Resolved]
  - Reaction to excipient [Unknown]
  - Product substitution issue [Unknown]
  - Suicidal behaviour [Recovered/Resolved]
  - Incoherent [Recovered/Resolved]
  - Dissociation [Recovered/Resolved]

NARRATIVE: CASE EVENT DATE: 20191101
